FAERS Safety Report 25625724 (Version 1)
Quarter: 2025Q3

REPORT INFORMATION
  Report Type: Other
  Country: US (occurrence: US)
  Receive Date: 20250731
  Receipt Date: 20250731
  Transmission Date: 20251021
  Serious: Yes (Death, Hospitalization, Other)
  Sender: ANI
  Company Number: US-ANIPHARMA-023819

PATIENT
  Age: 41 Year
  Sex: Female

DRUGS (9)
  1. VANCOMYCIN [Suspect]
     Active Substance: VANCOMYCIN
     Indication: Evidence based treatment
  2. CYCLOPHOSPHAMIDE [Suspect]
     Active Substance: CYCLOPHOSPHAMIDE
     Indication: Invasive ductal breast carcinoma
  3. PEMBROLIZUMAB [Concomitant]
     Active Substance: PEMBROLIZUMAB
     Indication: Invasive ductal breast carcinoma
  4. DOXORUBICIN [Concomitant]
     Active Substance: DOXORUBICIN
     Indication: Invasive ductal breast carcinoma
  5. CEFEPIME [Concomitant]
     Active Substance: CEFEPIME HYDROCHLORIDE
     Indication: Evidence based treatment
  6. METRONIDAZOLE [Concomitant]
     Active Substance: METRONIDAZOLE
     Indication: Evidence based treatment
  7. ANIDULAFUNGIN [Concomitant]
     Active Substance: ANIDULAFUNGIN
     Indication: Evidence based treatment
  8. DAPTOMYCIN [Concomitant]
     Active Substance: DAPTOMYCIN
     Indication: Evidence based treatment
  9. CEFTAROLINE FOSAMIL [Concomitant]
     Active Substance: CEFTAROLINE FOSAMIL
     Indication: Evidence based treatment

REACTIONS (3)
  - Renal failure [Fatal]
  - Linear IgA disease [Unknown]
  - Hypotension [Unknown]
